FAERS Safety Report 15536680 (Version 2)
Quarter: 2018Q4

REPORT INFORMATION
  Report Type: Report from Study
  Country: None (occurrence: CA)
  Receive Date: 20181022
  Receipt Date: 20181206
  Transmission Date: 20190205
  Serious: Yes (Disabling, Other)
  Sender: FDA-Public Use
  Company Number: CA-ABBVIE-18K-028-2472745-00

PATIENT
  Age: 12 Year
  Sex: Male
  Weight: 71 kg

DRUGS (3)
  1. CHOLESTYRAMINE. [Concomitant]
     Active Substance: CHOLESTYRAMINE
     Indication: BILE ACID MALABSORPTION
     Route: 048
     Dates: start: 2013
  2. TRIFEREXX [Concomitant]
     Indication: ANAEMIA
     Route: 048
     Dates: start: 20170801
  3. HUMIRA [Suspect]
     Active Substance: ADALIMUMAB
     Indication: CROHN^S DISEASE
     Route: 058
     Dates: start: 20130529

REACTIONS (4)
  - Stricturoplasty [Recovered/Resolved]
  - Gastrointestinal anastomotic stenosis [Recovering/Resolving]
  - Abdominal pain lower [Not Recovered/Not Resolved]
  - Intestinal resection [Recovered/Resolved]

NARRATIVE: CASE EVENT DATE: 201310
